FAERS Safety Report 10249112 (Version 2)
Quarter: 2014Q2

REPORT INFORMATION
  Report Type: Report from Study
  Country: BR (occurrence: BR)
  Receive Date: 20140620
  Receipt Date: 20140620
  Transmission Date: 20141212
  Serious: Yes (Hospitalization)
  Sender: FDA-Public Use
  Company Number: PHHY2014BR008348

PATIENT
  Age: 36 Year
  Sex: Female
  Weight: 95 kg

DRUGS (5)
  1. SANDOSTATIN LAR [Suspect]
     Indication: ACROMEGALY
     Dosage: 20 MG, QMO
     Dates: start: 201011, end: 2011
  2. SANDOSTATIN LAR [Suspect]
     Dosage: 30 MG, QMO
     Dates: start: 201112, end: 201312
  3. SANDOSTATIN LAR [Suspect]
     Dosage: 30 MG, QMO
     Dates: start: 20131219
  4. SANDOSTATIN LAR [Suspect]
     Dosage: 30 MG, QMO
     Dates: end: 201401
  5. PURAN T4 [Concomitant]
     Dosage: 1 DF, DAILY
     Dates: start: 201401

REACTIONS (6)
  - Disorientation [Recovered/Resolved]
  - Infection [Recovered/Resolved]
  - Drug hypersensitivity [Recovered/Resolved]
  - Weight decreased [Unknown]
  - Tongue disorder [Recovered/Resolved with Sequelae]
  - Asthenia [Recovered/Resolved]
